FAERS Safety Report 5190827-3 (Version None)
Quarter: 2006Q4

REPORT INFORMATION
  Report Type: 
  Country: None (occurrence: None)
  Receive Date: 20061215
  Receipt Date: 20061129
  Transmission Date: 20070319
  Serious: Yes (Other)
  Sender: FDA-Public Use
  Company Number: 36388

PATIENT
  Age: 69 Year
  Sex: Female

DRUGS (12)
  1. TRAVATAN [Suspect]
     Indication: GLAUCOMA
     Dosage: EYE DROPS, SOLUTION, 1GTT IN THE EVENING, OPHTHALMIC
     Route: 047
     Dates: start: 20060905, end: 20060907
  2. ATACAND [Concomitant]
  3. ALDACTONE [Concomitant]
  4. DIGOXIN [Concomitant]
  5. PLAVIX [Concomitant]
  6. LEVOTHYROXINE SODIUM [Concomitant]
  7. OMEPRAZOLE [Concomitant]
  8. LEXOMIL (BROMAZEPAM) [Concomitant]
  9. ZOLOFT [Concomitant]
  10. IMOVANE (ZOPICLONE) [Concomitant]
  11. LASILIX (FUROSEMIDE SODIUM) [Concomitant]
  12. NITROGLYCERIN [Concomitant]

REACTIONS (3)
  - ASTHMA [None]
  - CHEST DISCOMFORT [None]
  - CONGESTIVE CARDIOMYOPATHY [None]
